FAERS Safety Report 6382071-9 (Version None)
Quarter: 2009Q3

REPORT INFORMATION
  Report Type: 
  Country: None (occurrence: None)
  Receive Date: 20090930
  Receipt Date: 20090918
  Transmission Date: 20100115
  Serious: Yes (Disabling)
  Sender: FDA-Public Use
  Company Number: PHEH2009US10614

PATIENT
  Sex: Male
  Weight: 53 kg

DRUGS (2)
  1. EXJADE [Suspect]
     Indication: MYELODYSPLASTIC SYNDROME
     Dosage: 1000 MG, QD
     Route: 048
     Dates: start: 20090817
  2. ARANESP [Concomitant]
     Indication: ANAEMIA
     Dosage: 200 UG, EVERY OTHER WEEK

REACTIONS (2)
  - ARTHRITIS [None]
  - PAIN IN EXTREMITY [None]
